FAERS Safety Report 9838009 (Version 1)
Quarter: 2014Q1

REPORT INFORMATION
  Report Type: Report from Study
  Country: US (occurrence: US)
  Receive Date: 20140123
  Receipt Date: 20140123
  Transmission Date: 20141002
  Serious: Yes (Hospitalization)
  Sender: FDA-Public Use
  Company Number: US-ACTELION-A-NJ2014-93779

PATIENT
  Age: 49 Year
  Sex: Female

DRUGS (2)
  1. VELETRI [Suspect]
     Indication: PULMONARY ARTERIAL HYPERTENSION
     Dosage: 73.48 NG/KG, PER MIN
     Route: 042
     Dates: start: 20110727
  2. COUMADIN [Concomitant]

REACTIONS (4)
  - Ovarian rupture [Unknown]
  - Ovarian haemorrhage [Unknown]
  - Haemoglobin decreased [Unknown]
  - Adnexa uteri pain [Unknown]
